FAERS Safety Report 4288784-7 (Version None)
Quarter: 2004Q1

REPORT INFORMATION
  Report Type: 
  Country: None (occurrence: None)
  Receive Date: 20040205
  Receipt Date: 20040115
  Transmission Date: 20041129
  Serious: Yes (Death, Hospitalization)
  Sender: FDA-Public Use
  Company Number: D01200400192

PATIENT
  Age: 77 Year
  Sex: Male

DRUGS (4)
  1. (SR57746 OR PLACEBO) [Concomitant]
     Indication: CHEMOTHERAPY NEUROTOXICITY ATTENUATION
     Dosage: 1 MG QD, ORAL
     Route: 048
     Dates: start: 20040115, end: 20040116
  2. (SR57746 OR PLACEBO) [Concomitant]
     Indication: COLORECTAL CANCER METASTATIC
     Dosage: 1 MG QD, ORAL
     Route: 048
     Dates: start: 20040115, end: 20040116
  3. (OXALIPLATIN) [Suspect]
     Dosage: 85 MG/M2 Q2W, INTRAVENOUS NOS
     Route: 042
     Dates: start: 20040115, end: 20040115
  4. FLUOROURACIL [Suspect]
     Dosage: 400 MG/M2 AS IV BOLUS THEN 600 MG/M2 AS 22 HOURS CONTINUOUS INFUSION D1-D2 Q2W
     Route: 040
     Dates: start: 20040115, end: 20040116

REACTIONS (5)
  - C-REACTIVE PROTEIN INCREASED [None]
  - DISEASE PROGRESSION [None]
  - INTESTINAL OBSTRUCTION [None]
  - NEUTROPHIL COUNT INCREASED [None]
  - WHITE BLOOD CELL COUNT INCREASED [None]
